FAERS Safety Report 5129939-9 (Version None)
Quarter: 2006Q4

REPORT INFORMATION
  Report Type: 
  Country: None (occurrence: None)
  Receive Date: 20061011
  Receipt Date: 20061003
  Transmission Date: 20070319
  Serious: No
  Sender: FDA-Public Use
  Company Number: 2006-148592-NL

PATIENT
  Sex: Female

DRUGS (2)
  1. MIRTAZAPINE [Suspect]
     Dosage: DF ORAL
     Route: 048
  2. CABERGOLINE [Suspect]
     Indication: HYPERPROLACTINAEMIA
     Dosage: 0.5 MG BW

REACTIONS (3)
  - DRUG INTERACTION [None]
  - HALLUCINATION, AUDITORY [None]
  - HALLUCINATION, VISUAL [None]
